FAERS Safety Report 4485762-X (Version None)
Quarter: 2004Q4

REPORT INFORMATION
  Report Type: 
  Country: None (occurrence: None)
  Receive Date: 20041026
  Receipt Date: 20040603
  Transmission Date: 20050328
  Serious: Yes (Life-Threatening)
  Sender: FDA-Public Use
  Company Number: PHBS2004JP07488

PATIENT
  Age: 74 Year
  Sex: Male
  Weight: 50 kg

DRUGS (9)
  1. VOLTAREN [Suspect]
     Indication: PYREXIA
     Dosage: 50 MG, BID
     Route: 054
     Dates: start: 20040602, end: 20040602
  2. VANCOMYCIN [Suspect]
     Indication: STAPHYLOCOCCAL INFECTION
     Dosage: 1 G, BID
     Route: 042
     Dates: start: 20040526, end: 20040602
  3. CEROCRAL [Concomitant]
     Indication: CEREBRAL INFARCTION
     Route: 048
     Dates: start: 20020101
  4. SERMION [Concomitant]
     Indication: CEREBRAL INFARCTION
     Route: 048
     Dates: start: 20020101
  5. CYANOCOBALAMIN [Concomitant]
     Indication: OPTIC NEUROPATHY
     Route: 048
     Dates: start: 20040504, end: 20040510
  6. MUCOSTA [Concomitant]
     Indication: GASTRITIS
     Route: 048
     Dates: start: 20040504, end: 20040508
  7. GASTER D [Concomitant]
     Indication: GASTRIC ULCER
     Route: 048
     Dates: start: 20040504, end: 20040508
  8. FLUMARIN [Concomitant]
     Indication: INFECTION
     Route: 042
     Dates: start: 20040430, end: 20040525
  9. FLOMOX [Concomitant]
     Route: 048
     Dates: start: 20040520, end: 20040523

REACTIONS (6)
  - BODY TEMPERATURE DECREASED [None]
  - DIZZINESS [None]
  - FALL [None]
  - HYPOTENSION [None]
  - LOSS OF CONSCIOUSNESS [None]
  - SHOCK [None]
